FAERS Safety Report 24267299 (Version 1)
Quarter: 2024Q3

REPORT INFORMATION
  Report Type: Spontaneous
  Country: IT (occurrence: IT)
  Receive Date: 20240830
  Receipt Date: 20240830
  Transmission Date: 20241016
  Serious: Yes (Hospitalization)
  Sender: RANBAXY
  Company Number: IT-MINISAL02-990832

PATIENT
  Age: 89 Year
  Sex: Female

DRUGS (9)
  1. ODOMZO [Suspect]
     Active Substance: SONIDEGIB
     Indication: Basal cell carcinoma
     Dosage: 200MG 1 CAPSULE PER DAY
     Route: 048
     Dates: start: 20240102, end: 20240201
  2. LYRICA [Concomitant]
     Active Substance: PREGABALIN
     Indication: Neuropathy peripheral
     Dosage: 75 MG 1CAPSULE PER DAY
     Route: 048
  3. ALLOPURINOL [Concomitant]
     Active Substance: ALLOPURINOL
     Indication: Hyperuricaemia
     Dosage: 300 MG 1CPR PER DAY
     Route: 048
  4. OMEPRAZOLE [Concomitant]
     Active Substance: OMEPRAZOLE
     Indication: Gastritis prophylaxis
     Dosage: 20 MG 1 TABLET PER DAY
     Route: 048
  5. PREDNISONE [Concomitant]
     Active Substance: PREDNISONE
     Indication: Thrombocytopenia
     Dosage: 25 MG 1 TABLET X DAY FOR THREE DAYS, THEN 1/4 X DAY FOR ANOTHER 3 DAYS
     Route: 048
     Dates: start: 20240217
  6. LASIX [Concomitant]
     Active Substance: FUROSEMIDE
     Indication: Hypertension
     Dosage: 25 MG 1 TABLET 2 TIMES DAILY
     Route: 048
  7. FENTANYL [Concomitant]
     Active Substance: FENTANYL\FENTANYL CITRATE
     Indication: Analgesic therapy
     Dosage: 25 MCG 1 PATCH EVERY 3 DAYS
     Route: 062
  8. CANDESARTAN [Concomitant]
     Active Substance: CANDESARTAN
     Indication: Hypertension
     Dosage: 16 MG 1/2 TABLET DAILY
     Route: 048
  9. BISOPROLOL [Concomitant]
     Active Substance: BISOPROLOL\BISOPROLOL FUMARATE
     Indication: Hypertension
     Dosage: 1.25 MG 1 TABLET 2 TIMES A DAY
     Route: 048

REACTIONS (1)
  - Thrombocytopenia [Recovering/Resolving]

NARRATIVE: CASE EVENT DATE: 20240201
